FAERS Safety Report 21335005 (Version 1)
Quarter: 2022Q3

REPORT INFORMATION
  Report Type: Spontaneous
  Country: US (occurrence: None)
  Receive Date: 20220914
  Receipt Date: 20220914
  Transmission Date: 20221027
  Serious: Yes (Other)
  Sender: FDA-Public Use
  Company Number: None

PATIENT
  Age: 40 Year
  Sex: Female
  Weight: 86.18 kg

DRUGS (14)
  1. LEVOTHYROXINE [Suspect]
     Active Substance: LEVOTHYROXINE
     Indication: Hypothyroidism
     Dosage: FREQUENCY : DAILY;?
     Route: 048
     Dates: start: 2002, end: 202208
  2. SYNTHROID [Concomitant]
     Active Substance: LEVOTHYROXINE SODIUM
  3. CHOLECALCIFEROL [Concomitant]
     Active Substance: CHOLECALCIFEROL
  4. VITAMIN D3 [Concomitant]
     Active Substance: CHOLECALCIFEROL
  5. mv-mn/folic/lutein/herbal 293 (ALIVE PREMIUM WOMEN^S 50 PLUS ORAL) [Concomitant]
  6. PROZAC [Concomitant]
     Active Substance: FLUOXETINE HYDROCHLORIDE
  7. Bypropion HCL (WELLBUTRIN XL) [Concomitant]
  8. Hydroxyzine HCL (ATARAX) [Concomitant]
  9. HYDROCHLOROTHIAZIDE [Concomitant]
     Active Substance: HYDROCHLOROTHIAZIDE
  10. ZYRTEC [Concomitant]
     Active Substance: CETIRIZINE HYDROCHLORIDE
  11. Potassium-99 [Concomitant]
  12. multivitamin (DAILY-VITE) [Concomitant]
  13. NEURONTIN [Concomitant]
     Active Substance: GABAPENTIN
  14. torsemide (DEMADEX) [Concomitant]

REACTIONS (5)
  - Peripheral swelling [None]
  - Fatigue [None]
  - Weight decreased [None]
  - Peripheral swelling [None]
  - Drug ineffective [None]
